FAERS Safety Report 5335177-7 (Version None)
Quarter: 2007Q2

REPORT INFORMATION
  Report Type: 
  Country: None (occurrence: None)
  Receive Date: 20070525
  Receipt Date: 20070515
  Transmission Date: 20071010
  Serious: Yes (Other)
  Sender: FDA-Public Use
  Company Number: AU-PFIZER INC-2007039937

PATIENT
  Sex: Female

DRUGS (3)
  1. NEURONTIN [Suspect]
     Indication: EPILEPSY
  2. KEPPRA [Suspect]
     Indication: EPILEPSY
  3. DILANTIN [Suspect]

REACTIONS (3)
  - EPILEPSY [None]
  - GAIT DISTURBANCE [None]
  - SEDATION [None]
